FAERS Safety Report 6197973-6 (Version None)
Quarter: 2009Q2

REPORT INFORMATION
  Report Type: 
  Country: None (occurrence: None)
  Receive Date: 20090521
  Receipt Date: 20090512
  Transmission Date: 20091009
  Serious: Yes (Other)
  Sender: FDA-Public Use
  Company Number: ZA-JNJFOC-20090502714

PATIENT
  Sex: Female
  Weight: 76 kg

DRUGS (1)
  1. DOXORUBICIN HCL [Suspect]
     Indication: BREAST CANCER
     Route: 042

REACTIONS (1)
  - PNEUMONITIS [None]
